FAERS Safety Report 9327574 (Version 1)
Quarter: 2013Q2

REPORT INFORMATION
  Report Type: Spontaneous
  Country: US (occurrence: US)
  Receive Date: 20130604
  Receipt Date: 20130604
  Transmission Date: 20140414
  Serious: No
  Sender: FDA-Public Use
  Company Number: US-AMGEN-USASP2013038479

PATIENT
  Age: 50 Year
  Sex: Male

DRUGS (2)
  1. ENBREL [Suspect]
     Indication: RHEUMATOID ARTHRITIS
     Dosage: 50 MG/WEEK PER PATIENT
     Route: 065
     Dates: start: 20010315
  2. REMICADE [Concomitant]
     Dosage: UNK

REACTIONS (5)
  - Dyspnoea [Recovered/Resolved]
  - Oxygen saturation decreased [Recovered/Resolved]
  - Synovial cyst [Recovered/Resolved]
  - Muscle atrophy [Not Recovered/Not Resolved]
  - Hyperhidrosis [Not Recovered/Not Resolved]
